FAERS Safety Report 25042751 (Version 1)
Quarter: 2025Q1

REPORT INFORMATION
  Report Type: Report from Study
  Country: US (occurrence: US)
  Receive Date: 20250305
  Receipt Date: 20250305
  Transmission Date: 20250409
  Serious: Yes (Death)
  Sender: PFIZER
  Company Number: US-PFIZER INC-202500049162

PATIENT
  Age: 54 Year
  Sex: Female

DRUGS (8)
  1. TUKYSA [Suspect]
     Active Substance: TUCATINIB
     Dosage: 300 MG, 2X/DAY
     Route: 048
     Dates: start: 202412
  2. CAPECITABINE [Concomitant]
     Active Substance: CAPECITABINE
  3. HERCEPTIN [Concomitant]
     Active Substance: TRASTUZUMAB
  4. MIRALAX [Concomitant]
     Active Substance: POLYETHYLENE GLYCOL 3350
  5. MORPHINE [Concomitant]
     Active Substance: MORPHINE
  6. ONDANSETRON [Concomitant]
     Active Substance: ONDANSETRON
  7. RAMIPRIL [Concomitant]
     Active Substance: RAMIPRIL
  8. SENNA LEAF [Concomitant]
     Active Substance: SENNA LEAF

REACTIONS (1)
  - Death [Fatal]

NARRATIVE: CASE EVENT DATE: 20250221
